FAERS Safety Report 4834335-5 (Version None)
Quarter: 2005Q4

REPORT INFORMATION
  Report Type: 
  Country: None (occurrence: None)
  Receive Date: 20051122
  Receipt Date: 20050208
  Transmission Date: 20060501
  Serious: Yes (Life-Threatening, Hospitalization, Disabling)
  Sender: FDA-Public Use
  Company Number: DE-MERCK-0502DEU00067

PATIENT
  Age: 53 Year
  Sex: Male
  Weight: 71 kg

DRUGS (3)
  1. VIOXX [Suspect]
     Indication: BACK PAIN
     Route: 048
     Dates: start: 20020101, end: 20040401
  2. TOLPERISONE HYDROCHLORIDE [Concomitant]
     Route: 048
  3. TETRAZEPAM [Concomitant]
     Route: 048

REACTIONS (12)
  - ANGINA PECTORIS [None]
  - ANXIETY [None]
  - BACK PAIN [None]
  - CARDIAC NEUROSIS [None]
  - DEPRESSION [None]
  - GASTRITIS [None]
  - MYOCARDIAL INFARCTION [None]
  - PAIN [None]
  - PALPITATIONS [None]
  - PANIC ATTACK [None]
  - PANIC DISORDER [None]
  - THORACIC OUTLET SYNDROME [None]
